FAERS Safety Report 7901966-5 (Version None)
Quarter: 2011Q4

REPORT INFORMATION
  Report Type: 
  Country: None (occurrence: None)
  Receive Date: 20111108
  Receipt Date: 20111028
  Transmission Date: 20120403
  Serious: Yes (Hospitalization, Other)
  Sender: FDA-Public Use
  Company Number: US-BAYER-2011-107042

PATIENT
  Age: 22 Year
  Sex: Female
  Weight: 80.726 kg

DRUGS (11)
  1. DROSPIRENONE AND ETHINYL ESTRADIOL [Suspect]
     Indication: ACNE
  2. BUSPIRONE [Concomitant]
     Indication: ANXIETY
     Dosage: 10 MG, QD
     Route: 048
  3. YASMIN [Suspect]
     Indication: ORAL CONTRACEPTION
     Dosage: UNK
     Dates: start: 20050601, end: 20090901
  4. LORTAB [Concomitant]
     Indication: GALLBLADDER PAIN
     Dosage: 7.5MG/500 MG EVERY 4-6 HOURS PRN
     Route: 048
  5. YASMIN [Suspect]
     Indication: ACNE
  6. PROTONIX [Concomitant]
     Indication: GASTRITIS
     Dosage: 40 MG, QD
     Route: 048
  7. LEXAPRO [Concomitant]
     Indication: DEPRESSION
     Dosage: 10 MG, QD
     Route: 048
     Dates: start: 20090301, end: 20090701
  8. DROSPIRENONE AND ETHINYL ESTRADIOL [Suspect]
     Indication: ORAL CONTRACEPTION
     Dosage: UNK
     Dates: start: 20050601, end: 20090901
  9. PROTONIX [Concomitant]
     Indication: ABDOMINAL DISCOMFORT
  10. LEXAPRO [Concomitant]
     Indication: ANXIETY
  11. BUSPAR [Concomitant]

REACTIONS (3)
  - GALLBLADDER DISORDER [None]
  - CHOLECYSTITIS CHRONIC [None]
  - ABDOMINAL PAIN [None]
